FAERS Safety Report 22175005 (Version 3)
Quarter: 2023Q2

REPORT INFORMATION
  Report Type: Spontaneous
  Country: US (occurrence: US)
  Receive Date: 20230405
  Receipt Date: 20230628
  Transmission Date: 20230722
  Serious: No
  Sender: FDA-Public Use
  Company Number: US-002147023-NVSC2023US078722

PATIENT
  Sex: Female

DRUGS (2)
  1. PROMACTA [Suspect]
     Active Substance: ELTROMBOPAG OLAMINE
     Indication: Immune thrombocytopenia
     Dosage: 150 MG, QD (DAILY ADMINISTER ON AN EMPTY STOMACH, 1 HOUR BEFORE OR 2 HOURS AFTER A MEAL)
     Route: 048
     Dates: start: 202302
  2. PROMACTA [Suspect]
     Active Substance: ELTROMBOPAG OLAMINE
     Indication: Aplastic anaemia

REACTIONS (2)
  - Nausea [Unknown]
  - Vomiting [Unknown]
